FAERS Safety Report 12944406 (Version 3)
Quarter: 2020Q1

REPORT INFORMATION
  Report Type: Spontaneous
  Country: JP (occurrence: JP)
  Receive Date: 20161115
  Receipt Date: 20200218
  Transmission Date: 20200409
  Serious: Yes (Other)
  Sender: FDA-Public Use
  Company Number: JP-PFIZER INC-2016468471

PATIENT
  Age: 72 Year
  Sex: Female
  Weight: 46 kg

DRUGS (7)
  1. CALONAL [Concomitant]
     Active Substance: ACETAMINOPHEN
     Indication: PAIN
     Dosage: 500 MG, 2X/DAY
     Route: 048
     Dates: start: 20160404
  2. TRAMAL [Suspect]
     Active Substance: TRAMADOL
     Dosage: 25 MG, 2X/DAY
     Route: 048
     Dates: start: 20160919
  3. NOVAMIN (PROCHLORPERAZINE) [Suspect]
     Active Substance: PROCHLORPERAZINE
     Dosage: 5 MG, 1X/DAY
     Route: 048
     Dates: start: 20160919, end: 20161017
  4. LYRICA [Suspect]
     Active Substance: PREGABALIN
     Indication: NEURALGIA
  5. TRAMAL [Suspect]
     Active Substance: TRAMADOL
     Dosage: 25 MG, 2X/DAY
     Route: 048
     Dates: start: 20160725, end: 20160917
  6. LYRICA [Suspect]
     Active Substance: PREGABALIN
     Indication: DIABETIC NEUROPATHY
     Dosage: 75 MG, 2X/DAY
     Route: 048
     Dates: start: 20160202
  7. NOVAMIN (PROCHLORPERAZINE) [Suspect]
     Active Substance: PROCHLORPERAZINE
     Indication: PROPHYLAXIS
     Dosage: 5 MG, 1X/DAY
     Route: 048
     Dates: start: 20160725, end: 20160917

REACTIONS (8)
  - Product dose omission [Unknown]
  - Confusional state [Unknown]
  - Abnormal behaviour [Recovered/Resolved]
  - Akathisia [Unknown]
  - Restlessness [Unknown]
  - Drug withdrawal syndrome [Recovered/Resolved]
  - Crying [Unknown]
  - Hyperhidrosis [Unknown]

NARRATIVE: CASE EVENT DATE: 20160919
